FAERS Safety Report 8842251 (Version 1)
Quarter: 2012Q4

REPORT INFORMATION
  Report Type: Spontaneous
  Country: US (occurrence: None)
  Receive Date: 20121015
  Receipt Date: 20121015
  Transmission Date: 20130627
  Serious: Yes (Other)
  Sender: FDA-Public Use
  Company Number: None

PATIENT
  Age: 79 Year
  Sex: Male

DRUGS (1)
  1. FORTEO [Suspect]
     Dosage: 20 mcg daily sq
     Dates: start: 20120327, end: 20120924

REACTIONS (3)
  - Dyspnoea [None]
  - Asthenia [None]
  - Mobility decreased [None]
